FAERS Safety Report 8456640-6 (Version None)
Quarter: 2012Q2

REPORT INFORMATION
  Report Type: 
  Country: None (occurrence: None)
  Receive Date: 20120621
  Receipt Date: 20120606
  Transmission Date: 20120825
  Serious: Yes (Hospitalization, Other)
  Sender: FDA-Public Use
  Company Number: US-ROCHE-784215

PATIENT
  Sex: Male
  Weight: 56.75 kg

DRUGS (4)
  1. VIOXX [Concomitant]
  2. ZOLOFT [Concomitant]
  3. ACCUTANE [Suspect]
     Dates: start: 19990101, end: 19990501
  4. ACCUTANE [Suspect]
     Indication: ACNE
     Route: 065
     Dates: start: 19970101, end: 19980101

REACTIONS (6)
  - COLITIS ULCERATIVE [None]
  - IRRITABLE BOWEL SYNDROME [None]
  - DEPRESSION [None]
  - STRESS [None]
  - INFLAMMATORY BOWEL DISEASE [None]
  - INTESTINAL OBSTRUCTION [None]
